FAERS Safety Report 17262661 (Version 1)
Quarter: 2020Q1

REPORT INFORMATION
  Report Type: Spontaneous
  Country: US (occurrence: US)
  Receive Date: 20200113
  Receipt Date: 20200113
  Transmission Date: 20200409
  Serious: Yes (Other)
  Sender: FDA-Public Use
  Company Number: US-BRACCO-2020US00044

PATIENT
  Age: 47 Year
  Sex: Male

DRUGS (1)
  1. BARIUM SULPHATE [Suspect]
     Active Substance: BARIUM SULFATE
     Indication: BARIUM SWALLOW
     Dosage: UNK UNK, SINGLE
     Route: 048

REACTIONS (4)
  - Pulmonary oedema [Unknown]
  - Pneumonia bacterial [Unknown]
  - Aspiration [Unknown]
  - Acute respiratory failure [Unknown]
